FAERS Safety Report 15996154 (Version 2)
Quarter: 2019Q4

REPORT INFORMATION
  Report Type: Report from Study
  Country: US (occurrence: US)
  Receive Date: 20190222
  Receipt Date: 20191129
  Transmission Date: 20200122
  Serious: No
  Sender: FDA-Public Use
  Company Number: PHEH2019US007543

PATIENT
  Sex: Female

DRUGS (1)
  1. NEORAL [Suspect]
     Active Substance: CYCLOSPORINE
     Indication: PRODUCT USED FOR UNKNOWN INDICATION
     Dosage: UNK UNK, BID
     Route: 065

REACTIONS (2)
  - Incorrect dose administered [Unknown]
  - Drug ineffective [Unknown]
